FAERS Safety Report 16377622 (Version 2)
Quarter: 2020Q1

REPORT INFORMATION
  Report Type: Spontaneous
  Country: US (occurrence: US)
  Receive Date: 20190531
  Receipt Date: 20200228
  Transmission Date: 20200409
  Serious: No
  Sender: FDA-Public Use
  Company Number: US-TEVA-2019-US-1049103

PATIENT
  Sex: Female

DRUGS (1)
  1. DONEPEZIL TEVA [Suspect]
     Active Substance: DONEPEZIL HYDROCHLORIDE
     Indication: DEMENTIA ALZHEIMER^S TYPE
     Route: 065

REACTIONS (3)
  - Product taste abnormal [Unknown]
  - Drug intolerance [Unknown]
  - Fatigue [Unknown]
